FAERS Safety Report 15028193 (Version 1)
Quarter: 2018Q2

REPORT INFORMATION
  Report Type: Spontaneous
  Country: DE (occurrence: DE)
  Receive Date: 20180619
  Receipt Date: 20180619
  Transmission Date: 20180711
  Serious: Yes (Hospitalization)
  Sender: FDA-Public Use
  Company Number: PHHY2018DE024857

PATIENT
  Age: 76 Year
  Sex: Male
  Weight: 78 kg

DRUGS (9)
  1. CAPVAL [Concomitant]
     Active Substance: NOSCAPINE
     Indication: COUGH
     Dosage: 50 MG, UNK
     Route: 048
  2. VERGENTAN [Concomitant]
     Active Substance: ALIZAPRIDE HYDROCHLORIDE
     Indication: PROPHYLAXIS
     Dosage: 50 MG, UNK
     Route: 048
  3. NOVAMINSULFON [Concomitant]
     Active Substance: METAMIZOLE
     Indication: CHEST DISCOMFORT
     Dosage: 90 DROPS
     Route: 048
     Dates: start: 20180226
  4. GRANISETRON [Concomitant]
     Active Substance: GRANISETRON
     Indication: PROPHYLAXIS
     Dosage: 3 MG, UNK
     Route: 041
  5. CARBOPLATIN. [Suspect]
     Active Substance: CARBOPLATIN
     Indication: NON-SMALL CELL LUNG CANCER
     Dosage: UNK (6 MG MIN/ML)
     Route: 041
  6. TRAMADOL. [Concomitant]
     Active Substance: TRAMADOL
     Indication: CHEST DISCOMFORT
     Dosage: 200 MG, QD
     Route: 048
     Dates: start: 20171226
  7. ABRAXANE [Suspect]
     Active Substance: PACLITAXEL
     Indication: NON-SMALL CELL LUNG CANCER
     Dosage: 100 MG/M2, QD
     Route: 041
     Dates: start: 20171221
  8. ONDANSETRON [Concomitant]
     Active Substance: ONDANSETRON
     Indication: PROPHYLAXIS
     Dosage: 8 MG, UNK
     Route: 048
  9. SALBUTAMOL [Concomitant]
     Active Substance: ALBUTEROL
     Indication: COUGH
     Dosage: 5 GTT, UNK
     Route: 055

REACTIONS (2)
  - Anaemia [Recovering/Resolving]
  - Pulmonary embolism [Recovering/Resolving]

NARRATIVE: CASE EVENT DATE: 20180219
